FAERS Safety Report 7783702-9 (Version None)
Quarter: 2011Q3

REPORT INFORMATION
  Report Type: 
  Country: None (occurrence: None)
  Receive Date: 20110928
  Receipt Date: 20110922
  Transmission Date: 20111222
  Serious: Yes (Other)
  Sender: FDA-Public Use
  Company Number: US-AMGEN-USASP2011049137

PATIENT
  Sex: Male
  Weight: 78.5 kg

DRUGS (10)
  1. NPLATE [Suspect]
     Indication: IDIOPATHIC THROMBOCYTOPENIC PURPURA
     Dosage: 6 MUG/KG, QWK
     Dates: start: 20110210
  2. COMBIVENT [Concomitant]
  3. LORATADINE [Concomitant]
  4. TYLENOL (CAPLET) [Concomitant]
  5. VARDENAFIL HYDROCHLORIDE (LEVITRA) [Concomitant]
  6. VENLAFAXINE HYDROCHLORIDE [Concomitant]
  7. ZOLPIDEM [Concomitant]
  8. NPLATE [Suspect]
     Indication: SURGERY
  9. METHOCARBAMOL [Concomitant]
  10. GEMFIBROZIL [Concomitant]

REACTIONS (3)
  - PLATELET COUNT DECREASED [None]
  - DRUG SCREEN POSITIVE [None]
  - THERAPEUTIC RESPONSE DECREASED [None]
